FAERS Safety Report 7386876-7 (Version None)
Quarter: 2011Q1

REPORT INFORMATION
  Report Type: 
  Country: None (occurrence: None)
  Receive Date: 20110331
  Receipt Date: 20110328
  Transmission Date: 20110831
  Serious: Yes (Other)
  Sender: FDA-Public Use
  Company Number: US-PFIZER INC-2011069478

PATIENT
  Age: 94 Year
  Sex: Male

DRUGS (2)
  1. HALDOL [Concomitant]
     Dosage: UNK
  2. XANAX [Suspect]
     Dosage: UNK

REACTIONS (6)
  - ANXIETY [None]
  - AGGRESSION [None]
  - HALLUCINATION [None]
  - MEMORY IMPAIRMENT [None]
  - CONFUSIONAL STATE [None]
  - CONVULSION [None]
